FAERS Safety Report 7442149-5 (Version None)
Quarter: 2011Q2

REPORT INFORMATION
  Report Type: 
  Country: None (occurrence: None)
  Receive Date: 20110428
  Receipt Date: 20110414
  Transmission Date: 20111010
  Serious: Yes (Hospitalization, Other)
  Sender: FDA-Public Use
  Company Number: PHHY2011DE32543

PATIENT
  Sex: Male
  Weight: 120 kg

DRUGS (1)
  1. SANDOSTATIN LAR [Suspect]
     Indication: ACROMEGALY
     Dosage: 20 MG, UNK
     Route: 030
     Dates: start: 20110317

REACTIONS (5)
  - HAEMORRHOIDS [None]
  - TREMOR [None]
  - JAW DISORDER [None]
  - SHOCK HYPOGLYCAEMIC [None]
  - DIARRHOEA [None]
